FAERS Safety Report 18728901 (Version 1)
Quarter: 2021Q1

REPORT INFORMATION
  Report Type: Report from Study
  Country: RU (occurrence: RU)
  Receive Date: 20210112
  Receipt Date: 20210112
  Transmission Date: 20210419
  Serious: Yes (Other)
  Sender: FDA-Public Use
  Company Number: RU-TEVA-2021-RU-1867180

PATIENT
  Age: 36 Year
  Sex: Male

DRUGS (18)
  1. METHOTREXATE. [Suspect]
     Active Substance: METHOTREXATE
     Dosage: FOR 12 HOURS ON DAY 1 (BLOCK R2?B)
     Route: 041
  2. DOXORUBICINE [Suspect]
     Active Substance: DOXORUBICIN
     Indication: DIFFUSE LARGE B-CELL LYMPHOMA STAGE III
     Dosage: ON DAY 3 (BLOCK R2?A)
     Route: 041
  3. ETOPOSIDE. [Suspect]
     Active Substance: ETOPOSIDE
     Indication: DIFFUSE LARGE B-CELL LYMPHOMA STAGE III
     Dosage: ON DAYS 4?5 (BLOCK R2?A)
     Route: 041
  4. CYCLOPHOSPHAMIDE. [Suspect]
     Active Substance: CYCLOPHOSPHAMIDE
     Dosage: ON DAYS 1?5 (BLOCK R2?B)
     Route: 041
  5. DEXAMETHASONE. [Suspect]
     Active Substance: DEXAMETHASONE
     Dosage: ON DAYS 1?5 (BLOCK R2?A)
     Route: 041
  6. LENALIDOMIDE [Suspect]
     Active Substance: LENALIDOMIDE
     Indication: DIFFUSE LARGE B-CELL LYMPHOMA STAGE III
     Dosage: 25 MILLIGRAM DAILY; ON DAYS 1?10 (BLOCK R2?A)
     Route: 050
  7. DOXORUBICINE [Suspect]
     Active Substance: DOXORUBICIN
     Dosage: ON DAYS 4?5 (BLOCK R2?B)
     Route: 041
  8. IFOSFAMIDE. [Suspect]
     Active Substance: IFOSFAMIDE
     Indication: DIFFUSE LARGE B-CELL LYMPHOMA STAGE III
     Dosage: ON DAYS 1?5 (BLOCK R2?A)
     Route: 041
  9. RITUXIMAB. [Suspect]
     Active Substance: RITUXIMAB
     Dosage: ON DAY 0 IN 6 HOURS (BLOCK R2?B)
     Route: 041
  10. RITUXIMAB. [Suspect]
     Active Substance: RITUXIMAB
     Indication: DIFFUSE LARGE B-CELL LYMPHOMA STAGE III
     Dosage: ON DAY 0 IN 6 HOURS (BLOCK R2?A)
     Route: 041
  11. DEXAMETHASONE. [Suspect]
     Active Substance: DEXAMETHASONE
     Dosage: ON DAYS 1?5 (BLOCK R2?B)
     Route: 041
  12. LENALIDOMIDE [Suspect]
     Active Substance: LENALIDOMIDE
     Dosage: 25 MILLIGRAM DAILY; ON DAYS 1?10 (BLOCK R2?B)
     Route: 050
  13. DEXAMETHASONE. [Suspect]
     Active Substance: DEXAMETHASONE
     Indication: DIFFUSE LARGE B-CELL LYMPHOMA STAGE III
     Dosage: ON DAYS 1?5 (PREPHASE)
     Route: 041
  14. METHOTREXATE. [Suspect]
     Active Substance: METHOTREXATE
     Indication: DIFFUSE LARGE B-CELL LYMPHOMA STAGE III
     Dosage: FOR 12 HOURS ON DAY 1 (BLOCK R2?A)
     Route: 041
  15. VINCRISTINE [Suspect]
     Active Substance: VINCRISTINE
     Dosage: ON DAY 1 (BLOCK R2?B)
     Route: 040
  16. CYTARABINE. [Suspect]
     Active Substance: CYTARABINE
     Indication: DIFFUSE LARGE B-CELL LYMPHOMA STAGE III
     Dosage: 300 MG/M2 DAILY; ON DAYS 4?5 (BLOCK R2?A)
     Route: 041
  17. VINCRISTINE [Suspect]
     Active Substance: VINCRISTINE
     Indication: DIFFUSE LARGE B-CELL LYMPHOMA STAGE III
     Dosage: ON DAY 1 (BLOCK R2?A)
     Route: 040
  18. CYCLOPHOSPHAMIDE. [Suspect]
     Active Substance: CYCLOPHOSPHAMIDE
     Indication: DIFFUSE LARGE B-CELL LYMPHOMA STAGE III
     Dosage: ON DAYS 1?4 (PREPHASE)
     Route: 041

REACTIONS (1)
  - Haematotoxicity [Recovered/Resolved]
